FAERS Safety Report 22727274 (Version 3)
Quarter: 2024Q1

REPORT INFORMATION
  Report Type: Report from Study
  Country: GB (occurrence: GB)
  Receive Date: 20230720
  Receipt Date: 20240220
  Transmission Date: 20240409
  Serious: Yes (Hospitalization, Other)
  Sender: FDA-Public Use
  Company Number: GB-002147023-NVSC2023GB159136

PATIENT
  Sex: Female

DRUGS (2)
  1. KESIMPTA [Suspect]
     Active Substance: OFATUMUMAB
     Indication: Multiple sclerosis
     Dosage: 20 MG/KG, QMO
     Route: 058
     Dates: start: 20230412
  2. KESIMPTA [Suspect]
     Active Substance: OFATUMUMAB
     Dosage: 20 MG/KG, QMO
     Route: 058
     Dates: start: 20230413, end: 20240219

REACTIONS (3)
  - Cellulitis [Unknown]
  - Lower respiratory tract infection [Recovered/Resolved]
  - Acute myeloid leukaemia [Unknown]

NARRATIVE: CASE EVENT DATE: 20230706
